FAERS Safety Report 7569189-X (Version None)
Quarter: 2011Q2

REPORT INFORMATION
  Report Type: 
  Country: None (occurrence: None)
  Receive Date: 20110623
  Receipt Date: 20110610
  Transmission Date: 20111010
  Serious: Yes (Other)
  Sender: FDA-Public Use
  Company Number: PHHY2011NL51355

PATIENT
  Sex: Male

DRUGS (8)
  1. AFINITOR [Suspect]
     Indication: RENAL CELL CARCINOMA
  2. ALLOPURINOL [Concomitant]
     Dosage: 200 MG, 1DD400MG
  3. LANOXIN [Concomitant]
     Dosage: 0.125 MG, UNK
  4. PREDNISONE [Concomitant]
  5. TAVEGIL [Concomitant]
  6. SERETIDE [Concomitant]
  7. ENALAPRIL MALEATE [Concomitant]
     Dosage: 10 MG, 1DD10MG
  8. COLCHICINE [Concomitant]
     Dosage: 0.5 MG, 2DD0.5MG

REACTIONS (3)
  - SKIN TOXICITY [None]
  - SWOLLEN TONGUE [None]
  - PNEUMONITIS [None]
